FAERS Safety Report 5748228-2 (Version None)
Quarter: 2008Q2

REPORT INFORMATION
  Report Type: 
  Country: None (occurrence: None)
  Receive Date: 20080523
  Receipt Date: 20080514
  Transmission Date: 20081010
  Serious: Yes (Other)
  Sender: FDA-Public Use
  Company Number: US-PFIZER INC-2005163113

PATIENT
  Sex: Female
  Weight: 56.7 kg

DRUGS (5)
  1. NEURONTIN [Suspect]
     Indication: TRIGEMINAL NEURALGIA
  2. LYRICA [Suspect]
     Indication: VTH NERVE INJURY
  3. LIDODERM [Suspect]
     Indication: TRIGEMINAL NEURALGIA
     Route: 062
  4. ALEVE [Suspect]
  5. MOTRIN [Suspect]

REACTIONS (19)
  - AMNESIA [None]
  - APPETITE DISORDER [None]
  - BLINDNESS [None]
  - CEREBROVASCULAR ACCIDENT [None]
  - DRUG INEFFECTIVE [None]
  - DYSARTHRIA [None]
  - DYSPHAGIA [None]
  - FACE INJURY [None]
  - FATIGUE [None]
  - FEELING ABNORMAL [None]
  - GAIT DISTURBANCE [None]
  - HEARING IMPAIRED [None]
  - MOUTH INJURY [None]
  - PAIN [None]
  - SOMNOLENCE [None]
  - TREMOR [None]
  - VISION BLURRED [None]
  - VTH NERVE INJURY [None]
  - WEIGHT DECREASED [None]
